FAERS Safety Report 11148493 (Version 1)
Quarter: 2015Q2

REPORT INFORMATION
  Report Type: Spontaneous
  Country: US (occurrence: None)
  Receive Date: 20150528
  Receipt Date: 20150528
  Transmission Date: 20150821
  Serious: Yes (Other)
  Sender: FDA-Public Use
  Company Number: None

PATIENT
  Age: 59 Year
  Sex: Female
  Weight: 67.13 kg

DRUGS (18)
  1. PROTONIX [Concomitant]
     Active Substance: PANTOPRAZOLE SODIUM
  2. 1 CITRACAL + D [Concomitant]
  3. MONTELUKAST [Concomitant]
     Active Substance: MONTELUKAST SODIUM
  4. MVI [Concomitant]
     Active Substance: VITAMINS
  5. GLUCOSAMINE + CHONDROITIN (OSTEO BI-FLEX) [Concomitant]
  6. ENALAPRIL [Concomitant]
     Active Substance: ENALAPRIL
  7. ZYRTEC [Concomitant]
     Active Substance: CETIRIZINE HYDROCHLORIDE
  8. FISH OIL [Concomitant]
     Active Substance: FISH OIL
  9. BRINTELLIX [Suspect]
     Active Substance: VORTIOXETINE HYDROBROMIDE
     Indication: ANXIETY
     Dosage: 20 MG (1/2 TABLET)
     Route: 048
     Dates: start: 20150518, end: 20150525
  10. TOPROL XL [Concomitant]
     Active Substance: METOPROLOL SUCCINATE
  11. NASONEX [Concomitant]
     Active Substance: MOMETASONE FUROATE
  12. RELAFEN [Concomitant]
     Active Substance: NABUMETONE
  13. MAGNESIUM OXIDE. [Concomitant]
     Active Substance: MAGNESIUM OXIDE
  14. BRINTELLIX [Suspect]
     Active Substance: VORTIOXETINE HYDROBROMIDE
     Indication: DEPRESSION
     Dosage: 20 MG (1/2 TABLET)
     Route: 048
     Dates: start: 20150518, end: 20150525
  15. WELLBUTRIN SR [Concomitant]
     Active Substance: BUPROPION HYDROCHLORIDE
  16. PRISTIQ EXTENDED RELEASE [Concomitant]
     Active Substance: DESVENLAFAXINE SUCCINATE
  17. BLACK COHOSH [Concomitant]
     Active Substance: BLACK COHOSH
  18. CLONAZEPAM. [Concomitant]
     Active Substance: CLONAZEPAM

REACTIONS (5)
  - Scratch [None]
  - Discomfort [None]
  - Pruritus [None]
  - Peripheral swelling [None]
  - Nausea [None]

NARRATIVE: CASE EVENT DATE: 20150526
